FAERS Safety Report 21869449 (Version 1)
Quarter: 2023Q1

REPORT INFORMATION
  Report Type: Report from Study
  Country: US (occurrence: US)
  Receive Date: 20230117
  Receipt Date: 20230117
  Transmission Date: 20230417
  Serious: No
  Sender: FDA-Public Use
  Company Number: US-ABBVIE-4238241

PATIENT
  Age: 45 Year
  Sex: Female

DRUGS (1)
  1. SKYRIZI [Suspect]
     Active Substance: RISANKIZUMAB-RZAA
     Indication: Psoriasis
     Route: 058

REACTIONS (10)
  - Illness [Recovered/Resolved]
  - Illness [Unknown]
  - Throat irritation [Unknown]
  - Vomiting [Unknown]
  - Cough [Unknown]
  - Arthralgia [Unknown]
  - Chills [Unknown]
  - Pyrexia [Unknown]
  - Pain [Unknown]
  - Aphonia [Unknown]

NARRATIVE: CASE EVENT DATE: 20221101
